FAERS Safety Report 8775809 (Version 2)
Quarter: 2012Q4

REPORT INFORMATION
  Report Type: 
  Country: KR (occurrence: KR)
  Receive Date: 20120910
  Receipt Date: 20120917
  Transmission Date: 20130627
  Serious: Yes (Other)
  Sender: FDA-Public Use
  Company Number: KR-ROCHE-1120531

PATIENT
  Age: 75 Year
  Sex: Male

DRUGS (11)
  1. LUCENTIS [Suspect]
     Indication: AGE-RELATED MACULAR DEGENERATION
     Route: 050
     Dates: start: 20120322
  2. CLOPIDOGREL [Concomitant]
  3. ATORVASTATIN [Concomitant]
  4. VOGLIBOSE [Concomitant]
  5. GLIMEL [Concomitant]
  6. THEOPHYLLINE [Concomitant]
  7. AMBROXOL [Concomitant]
  8. FORMOTEROL FUMARATE [Concomitant]
  9. DONEPEZIL [Concomitant]
  10. SERTRALINE [Concomitant]
  11. CELECOXIB [Concomitant]

REACTIONS (1)
  - Cerebral infarction [Recovering/Resolving]
